FAERS Safety Report 5912082-6 (Version None)
Quarter: 2008Q4

REPORT INFORMATION
  Report Type: 
  Country: None (occurrence: None)
  Receive Date: 20081006
  Receipt Date: 20081006
  Transmission Date: 20090506
  Serious: Yes (Hospitalization)
  Sender: FDA-Public Use
  Company Number: None

PATIENT
  Age: 60 Year
  Sex: Male

DRUGS (9)
  1. ZOSYN [Suspect]
     Indication: PNEUMONIA
     Dosage: 3.375 Q6 IV
     Route: 042
     Dates: start: 20061025, end: 20061101
  2. ACYCLOVIR SODIUM [Concomitant]
  3. XANAX [Concomitant]
  4. LOMOTIL [Concomitant]
  5. SYNTHROID [Concomitant]
  6. MAGNESIUM OXIDE [Concomitant]
  7. PROTONIX [Concomitant]
  8. PREDNISONE [Concomitant]
  9. BACTRIM DS [Concomitant]

REACTIONS (1)
  - THROMBOCYTOPENIA [None]
